FAERS Safety Report 4689580-9 (Version None)
Quarter: 2005Q2

REPORT INFORMATION
  Report Type: 
  Country: None (occurrence: None)
  Receive Date: 20050613
  Receipt Date: 20050613
  Transmission Date: 20051028
  Serious: Yes (Hospitalization)
  Sender: FDA-Public Use
  Company Number: None

PATIENT
  Sex: Female

DRUGS (8)
  1. VELCADE [Suspect]
     Indication: DIFFUSE LARGE B-CELL LYMPHOMA
     Dosage: 1.3 MG/M2 D1 AND D 4 OF 21 DAY CYCLE
     Dates: start: 20050322
  2. VELCADE [Suspect]
     Indication: DIFFUSE LARGE B-CELL LYMPHOMA
     Dosage: 1.3 MG/M2 D1 AND D 4 OF 21 DAY CYCLE
     Dates: start: 20050325
  3. VELCADE [Suspect]
     Indication: DIFFUSE LARGE B-CELL LYMPHOMA
     Dosage: 1.3 MG/M2 D1 AND D 4 OF 21 DAY CYCLE
     Dates: start: 20050411
  4. VELCADE [Suspect]
     Indication: DIFFUSE LARGE B-CELL LYMPHOMA
     Dosage: 1.3 MG/M2 D1 AND D 4 OF 21 DAY CYCLE
     Dates: start: 20050414
  5. VELCADE [Suspect]
     Indication: DIFFUSE LARGE B-CELL LYMPHOMA
     Dosage: 1.3 MG/M2 D1 AND D 4 OF 21 DAY CYCLE
     Dates: start: 20050502
  6. VELCADE [Suspect]
     Indication: DIFFUSE LARGE B-CELL LYMPHOMA
     Dosage: 1.3 MG/M2 D1 AND D 4 OF 21 DAY CYCLE
     Dates: start: 20050505
  7. VELCADE [Suspect]
     Indication: DIFFUSE LARGE B-CELL LYMPHOMA
     Dosage: 1.3 MG/M2 D1 AND D 4 OF 21 DAY CYCLE
     Dates: start: 20050523
  8. VELCADE [Suspect]
     Indication: DIFFUSE LARGE B-CELL LYMPHOMA
     Dosage: 1.3 MG/M2 D1 AND D 4 OF 21 DAY CYCLE
     Dates: start: 20050526

REACTIONS (3)
  - ASTHENIA [None]
  - CLOSTRIDIUM COLITIS [None]
  - DIZZINESS [None]
